FAERS Safety Report 14619784 (Version 2)
Quarter: 2018Q2

REPORT INFORMATION
  Report Type: Spontaneous
  Country: US (occurrence: US)
  Receive Date: 20180309
  Receipt Date: 20180611
  Transmission Date: 20180711
  Serious: No
  Sender: FDA-Public Use
  Company Number: US-ASTRAZENECA-2018SE26355

PATIENT
  Age: 38 Year
  Sex: Female
  Weight: 47.6 kg

DRUGS (2)
  1. SEROQUEL XR [Suspect]
     Active Substance: QUETIAPINE FUMARATE
     Indication: ANXIETY
     Dosage: SEROQUEL XR BRAND FOR MORE THAN 3 YEARS. 200 MG AND 50 MG TABLET
     Route: 048
     Dates: start: 2016
  2. SEROQUEL XR [Suspect]
     Active Substance: QUETIAPINE FUMARATE
     Indication: SLEEP DISORDER
     Dosage: SEROQUEL XR BRAND FOR MORE THAN 3 YEARS. 200 MG AND 50 MG TABLET
     Route: 048
     Dates: start: 2016

REACTIONS (5)
  - Off label use [Unknown]
  - Product use in unapproved indication [Unknown]
  - Headache [Recovered/Resolved]
  - Product quality issue [Unknown]
  - Adverse drug reaction [Unknown]

NARRATIVE: CASE EVENT DATE: 2016
